FAERS Safety Report 14580851 (Version 2)
Quarter: 2020Q3

REPORT INFORMATION
  Report Type: Spontaneous
  Country: DE (occurrence: DE)
  Receive Date: 20180228
  Receipt Date: 20200924
  Transmission Date: 20201102
  Serious: Yes (Other)
  Sender: FDA-Public Use
  Company Number: DE-ASTRAZENECA-2018SE24385

PATIENT
  Age: 36 Year
  Sex: Female
  Weight: 62 kg

DRUGS (2)
  1. QUETIAPINE. [Suspect]
     Active Substance: QUETIAPINE
     Indication: DEPRESSION
     Dosage: 300 [MG/D ]/ 150 MG/D RETARDED AND 150 MG/D NON?RETARDED
     Route: 048
     Dates: start: 20161101, end: 20170724
  2. FEMIBION [Concomitant]
     Indication: PROPHYLAXIS OF NEURAL TUBE DEFECT
     Dosage: UNK (0?37.6 GESTATIONAL WEEK)
     Route: 048
     Dates: start: 20161101, end: 20170724

REACTIONS (1)
  - Gestational diabetes [Recovered/Resolved]
